FAERS Safety Report 9123250 (Version 4)
Quarter: 2013Q3

REPORT INFORMATION
  Report Type: Spontaneous
  Country: US (occurrence: None)
  Receive Date: 20130131
  Receipt Date: 20130929
  Transmission Date: 20140515
  Serious: Yes (Hospitalization)
  Sender: FDA-Public Use
  Company Number: JPI-P-026544

PATIENT
  Age: 25 Year
  Sex: Female
  Weight: 54.43 kg

DRUGS (5)
  1. XYREM [Suspect]
     Indication: NARCOLEPSY
     Dosage: 4.5 GM (2.25 GM, 2 IN 1 D)
     Route: 048
     Dates: start: 20091104, end: 2009
  2. CLONAZEPAM [Suspect]
     Indication: PRODUCT USED FOR UNKNOWN INDICATION
  3. UNSPECIFIED MEDICATIONS FOR DEPRESSIO N [Suspect]
     Indication: DEPRESSION
     Dates: start: 20130109, end: 20130115
  4. BUPROPION [Concomitant]
  5. ARMODAFINIL [Concomitant]

REACTIONS (6)
  - Eating disorder [None]
  - Anxiety [None]
  - Fatigue [None]
  - Condition aggravated [None]
  - Major depression [None]
  - Incorrect dose administered [None]
